FAERS Safety Report 9919070 (Version 1)
Quarter: 2014Q1

REPORT INFORMATION
  Report Type: Spontaneous
  Country: US (occurrence: US)
  Receive Date: 20140224
  Receipt Date: 20140224
  Transmission Date: 20141002
  Serious: No
  Sender: FDA-Public Use
  Company Number: US-PFIZER INC-2014052340

PATIENT
  Age: 60 Year
  Sex: Female
  Weight: 62.59 kg

DRUGS (1)
  1. CELEBREX [Suspect]
     Indication: LOCAL SWELLING
     Dosage: UNK
     Dates: start: 201402

REACTIONS (2)
  - Abdominal pain upper [Unknown]
  - Constipation [Unknown]
